FAERS Safety Report 4713044-7 (Version None)
Quarter: 2005Q3

REPORT INFORMATION
  Report Type: 
  Country: None (occurrence: None)
  Receive Date: 20050711
  Receipt Date: 20041006
  Transmission Date: 20060218
  Serious: Yes (Death)
  Sender: FDA-Public Use
  Company Number: 2004237663IN

PATIENT
  Age: 5 Year
  Sex: Female
  Weight: 10.6142 kg

DRUGS (4)
  1. SOLU-MEDROL [Suspect]
     Indication: ILL-DEFINED DISORDER
     Dosage: 4 MG/KG (1 MG/KG, 4 IN 1 D), INTRAVENOUS : 40 MG (10 MG,QID) INTRAVENOUS
     Route: 042
     Dates: start: 20040831, end: 20040902
  2. SOLU-MEDROL [Suspect]
     Indication: ILL-DEFINED DISORDER
     Dosage: 4 MG/KG (1 MG/KG, 4 IN 1 D), INTRAVENOUS : 40 MG (10 MG,QID) INTRAVENOUS
     Route: 042
     Dates: end: 20040902
  3. ASTHALIN (SALBUTAMOL) [Concomitant]
  4. IPRAVENT (IPRATROPIUM BROMIDE) [Concomitant]

REACTIONS (5)
  - ARRHYTHMIA [None]
  - CARDIAC ARREST [None]
  - CARDIO-RESPIRATORY ARREST [None]
  - MUSCULOSKELETAL STIFFNESS [None]
  - OXYGEN SATURATION DECREASED [None]
